FAERS Safety Report 9688064 (Version 1)
Quarter: 2013Q4

REPORT INFORMATION
  Report Type: Spontaneous
  Country: FR (occurrence: FR)
  Receive Date: 20131114
  Receipt Date: 20131114
  Transmission Date: 20140711
  Serious: Yes (Hospitalization, Other)
  Sender: FDA-Public Use
  Company Number: FR-VERTEX PHARMACEUTICALS INC-2013-011037

PATIENT
  Age: 48 Year
  Sex: Male

DRUGS (9)
  1. INCIVO [Suspect]
     Indication: HEPATITIS C
     Dosage: 750 MG, TID
     Route: 048
     Dates: start: 20111019, end: 20120227
  2. PEGASYS [Suspect]
     Indication: HEPATITIS C
     Dosage: 180 ?G, QW
     Route: 065
     Dates: start: 20111019, end: 20120227
  3. PEGASYS [Suspect]
     Dosage: 185 ?G, UNK
     Route: 065
  4. PEGASYS [Suspect]
     Dosage: REDUCED TO AN UNSPECIFIED DOSE
     Route: 065
  5. RIBAVIRINE [Suspect]
     Indication: HEPATITIS C
     Dosage: 600 MG, BID
     Route: 065
     Dates: start: 20111019, end: 20120227
  6. RISPERDAL [Concomitant]
     Indication: DEPRESSION
     Dosage: DOSAGE FORM: UNSPECIFIED
     Route: 048
     Dates: start: 1997
  7. AVLOCARDYL [Concomitant]
     Indication: GASTROOESOPHAGEAL VARICEAL HAEMORRHAGE PROPHYLAXIS
     Dates: start: 2009
  8. DOLIPRANE [Concomitant]
     Indication: PAIN
     Dosage: 1 TO 3 TIMES A DAY
     Dates: start: 20111020
  9. CONTRAMAL [Concomitant]
     Indication: PAIN
     Dosage: 50 MG, QID
     Dates: start: 20110815

REACTIONS (2)
  - Liver transplant [Unknown]
  - Thrombocytopenia [Recovered/Resolved]
